FAERS Safety Report 8975559 (Version 2)
Quarter: 2013Q1

REPORT INFORMATION
  Report Type: Spontaneous
  Country: FR (occurrence: FR)
  Receive Date: 20121219
  Receipt Date: 20130218
  Transmission Date: 20140127
  Serious: Yes (Other)
  Sender: FDA-Public Use
  Company Number: PHHY2012FR115679

PATIENT
  Age: 57 Year
  Sex: Female

DRUGS (5)
  1. ACLASTA [Suspect]
     Indication: OSTEOPOROSIS
     Dosage: 5 MG, (1DF/YEAR)
     Route: 042
     Dates: start: 2008
  2. ACLASTA [Suspect]
     Dosage: 5 MG, (1DF/YEAR)
     Route: 042
     Dates: start: 201110
  3. CORTICOSTEROIDS [Concomitant]
     Indication: RHEUMATOID ARTHRITIS
     Dosage: 5 MG, QD
     Route: 048
  4. MABTHERA [Concomitant]
     Indication: RHEUMATOID ARTHRITIS
     Dates: start: 2005, end: 2010
  5. METOJECT [Concomitant]
     Indication: RHEUMATOID ARTHRITIS

REACTIONS (2)
  - Osteonecrosis of jaw [Not Recovered/Not Resolved]
  - Loose tooth [Not Recovered/Not Resolved]
